FAERS Safety Report 7435948-7 (Version None)
Quarter: 2011Q2

REPORT INFORMATION
  Report Type: 
  Country: None (occurrence: None)
  Receive Date: 20110425
  Receipt Date: 20110420
  Transmission Date: 20111010
  Serious: Yes (Other)
  Sender: FDA-Public Use
  Company Number: CHPA2011US04937

PATIENT
  Sex: Female
  Weight: 58.957 kg

DRUGS (2)
  1. MAALOX ADV MAXIMUM STRENGTH ANTACID/ANTIGAS [Suspect]
     Indication: GASTROOESOPHAGEAL REFLUX DISEASE
     Dosage: UNK, UNK
     Route: 048
     Dates: start: 19910404
  2. MAALOX MS TOTAL STOMACH RELIEF [Suspect]
     Indication: GASTROOESOPHAGEAL REFLUX DISEASE
     Dosage: UNK, UNK
     Route: 048

REACTIONS (6)
  - THYROID DISORDER [None]
  - HYPERTENSION [None]
  - CARDIAC OPERATION [None]
  - DIABETES MELLITUS [None]
  - DIARRHOEA [None]
  - OFF LABEL USE [None]
